FAERS Safety Report 6644252-6 (Version None)
Quarter: 2010Q1

REPORT INFORMATION
  Report Type: 
  Country: None (occurrence: None)
  Receive Date: 20100317
  Receipt Date: 20100302
  Transmission Date: 20100710
  Serious: Yes (Other)
  Sender: FDA-Public Use
  Company Number: WAES 0706GBR00094

PATIENT
  Age: 40 Year
  Sex: Male

DRUGS (6)
  1. ISENTRESS [Suspect]
     Indication: HIV INFECTION
     Dosage: 400 MG/BID, PO
     Route: 048
     Dates: start: 20070416
  2. DARUNAVIR (+) RITONAVIR [Suspect]
     Indication: PATHOGEN RESISTANCE
     Dosage: 600/100 MG/BID
     Dates: start: 20070416
  3. COMBIVIR [Concomitant]
  4. AZITHROMYCIN [Concomitant]
  5. DAPSONE [Concomitant]
  6. TENOFOVIR [Concomitant]

REACTIONS (5)
  - ARTHRALGIA [None]
  - CHONDROCALCINOSIS PYROPHOSPHATE [None]
  - ERYTHEMA [None]
  - JOINT SWELLING [None]
  - MEAN CELL VOLUME INCREASED [None]
